FAERS Safety Report 9197921 (Version 1)
Quarter: 2013Q1

REPORT INFORMATION
  Report Type: Spontaneous
  Country: JP (occurrence: JP)
  Receive Date: 20130328
  Receipt Date: 20130328
  Transmission Date: 20140127
  Serious: Yes (Other)
  Sender: FDA-Public Use
  Company Number: JP-B.I. PHARMACEUTICALS,INC./RIDGEFIELD-2013-BI-07954NB

PATIENT
  Sex: 0

DRUGS (1)
  1. PRAZAXA [Suspect]
     Route: 048

REACTIONS (1)
  - Neoplasm malignant [Unknown]
